FAERS Safety Report 10751134 (Version 3)
Quarter: 2015Q1

REPORT INFORMATION
  Report Type: Spontaneous
  Country: US (occurrence: US)
  Receive Date: 20150130
  Receipt Date: 20150316
  Transmission Date: 20150721
  Serious: No
  Sender: FDA-Public Use
  Company Number: US-PFIZER INC-2015032534

PATIENT
  Sex: Female

DRUGS (2)
  1. DIVALPROEX [Concomitant]
     Active Substance: DIVALPROEX SODIUM
     Indication: SEIZURE
     Dosage: 500 MG X 3 IN THE MORNING, 1 AT BED TIME
     Dates: start: 1975
  2. ZARONTIN [Suspect]
     Active Substance: ETHOSUXIMIDE
     Indication: SEIZURE
     Dosage: 250 MG X 2, IN THE MORNING AND AT BED TIME
     Dates: start: 1971

REACTIONS (4)
  - Hypertension [Unknown]
  - Arthritis [Not Recovered/Not Resolved]
  - Thyroid disorder [Unknown]
  - Gout [Unknown]
